FAERS Safety Report 4765274-6 (Version None)
Quarter: 2005Q3

REPORT INFORMATION
  Report Type: 
  Country: None (occurrence: None)
  Receive Date: 20050906
  Receipt Date: 20050818
  Transmission Date: 20060218
  Serious: Yes (Other)
  Sender: FDA-Public Use
  Company Number: GBS050818227

PATIENT
  Age: 45 Year
  Sex: Male
  Weight: 117 kg

DRUGS (2)
  1. CIALIS [Suspect]
     Indication: ERECTILE DYSFUNCTION
     Dosage: 10 MG
     Dates: start: 20050304, end: 20050507
  2. INSULIN [Concomitant]

REACTIONS (2)
  - DYSAESTHESIA [None]
  - MIGRAINE [None]
